FAERS Safety Report 10445216 (Version 1)
Quarter: 2014Q3

REPORT INFORMATION
  Report Type: Spontaneous
  Country: ES (occurrence: ES)
  Receive Date: 20140910
  Receipt Date: 20140910
  Transmission Date: 20150326
  Serious: Yes (Other)
  Sender: FDA-Public Use
  Company Number: PHHY2014ES111946

PATIENT
  Age: 32 Year
  Sex: Female

DRUGS (2)
  1. HYDROCORTISONE. [Suspect]
     Active Substance: HYDROCORTISONE
     Dosage: 10 MG IN THE MORNING AND 5 MG AT NIGHT
  2. HYDROCORTISONE. [Suspect]
     Active Substance: HYDROCORTISONE
     Indication: HYPOPITUITARISM
     Dosage: 20 MG IN THE MORNING AND 10 MG AT NIGHT

REACTIONS (5)
  - Osteonecrosis [Unknown]
  - Musculoskeletal pain [Unknown]
  - Bone lesion [Unknown]
  - Bone infarction [Unknown]
  - Arthralgia [Unknown]
